FAERS Safety Report 7936380-X (Version None)
Quarter: 2011Q4

REPORT INFORMATION
  Report Type: 
  Country: None (occurrence: None)
  Receive Date: 20111123
  Receipt Date: 20111116
  Transmission Date: 20120403
  Serious: Yes (Other)
  Sender: FDA-Public Use
  Company Number: GB-SANOFI-AVENTIS-2011SA031476

PATIENT
  Age: 72 Year
  Sex: Female
  Weight: 67.6 kg

DRUGS (8)
  1. ASPIRIN [Concomitant]
  2. LOPERAMIDE HCL [Concomitant]
     Indication: DIARRHOEA
     Dosage: DOSE:1 UNIT(S)
     Route: 065
     Dates: start: 20110519
  3. MULTAQ [Suspect]
     Indication: ATRIAL FIBRILLATION
     Route: 048
     Dates: start: 20110504, end: 20110801
  4. FLECAINIDE ACETATE [Concomitant]
  5. PRAVASTATIN [Concomitant]
  6. ATENOLOL [Concomitant]
  7. PROPRANOLOL [Concomitant]
  8. ANTIBIOTICS [Concomitant]

REACTIONS (12)
  - ANXIETY [None]
  - ELECTROCARDIOGRAM CHANGE [None]
  - RENAL DISORDER [None]
  - WEIGHT DECREASED [None]
  - ATRIAL FIBRILLATION [None]
  - PANIC ATTACK [None]
  - MALAISE [None]
  - URINARY TRACT INFECTION [None]
  - HYPERTENSION [None]
  - BLOOD PRESSURE FLUCTUATION [None]
  - SYNCOPE [None]
  - NAUSEA [None]
